FAERS Safety Report 20428018 (Version 1)
Quarter: 2022Q1

REPORT INFORMATION
  Report Type: Spontaneous
  Country: US (occurrence: US)
  Receive Date: 20220204
  Receipt Date: 20220204
  Transmission Date: 20220423
  Serious: No
  Sender: FDA-Public Use
  Company Number: US-LUNDBECK-DKLU3043690

PATIENT
  Age: 68 Year
  Sex: Male

DRUGS (3)
  1. NORTHERA [Suspect]
     Active Substance: DROXIDOPA
     Indication: Parkinson^s disease
     Route: 048
  2. NORTHERA [Suspect]
     Active Substance: DROXIDOPA
     Indication: Orthostatic hypotension
  3. NORTHERA [Suspect]
     Active Substance: DROXIDOPA
     Indication: Hypotension

REACTIONS (4)
  - Dizziness [Unknown]
  - Blood pressure decreased [Unknown]
  - Presyncope [Not Recovered/Not Resolved]
  - Drug ineffective [Unknown]
